FAERS Safety Report 13016839 (Version 7)
Quarter: 2017Q1

REPORT INFORMATION
  Report Type: Report from Study
  Country: FR (occurrence: FR)
  Receive Date: 20161212
  Receipt Date: 20170223
  Transmission Date: 20170428
  Serious: Yes (Hospitalization)
  Sender: FDA-Public Use
  Company Number: FR-ROCHE-1863829

PATIENT
  Age: 64 Year
  Sex: Male
  Weight: 64 kg

DRUGS (21)
  1. OBINUTUZUMAB [Suspect]
     Active Substance: OBINUTUZUMAB
     Dosage: PART 2-D1
     Route: 041
     Dates: start: 20160830
  2. IBRUTINIB [Suspect]
     Active Substance: IBRUTINIB
     Route: 048
     Dates: start: 20160907, end: 20160927
  3. IBRUTINIB [Suspect]
     Active Substance: IBRUTINIB
     Dosage: ON 22/NOV/2016, IBRUTINIB 140 MG/D WAS RESUMED AT UNSPECIFIED DOSAGE
     Route: 048
     Dates: start: 20160928, end: 201612
  4. OXYNORM [Concomitant]
     Active Substance: OXYCODONE HYDROCHLORIDE
  5. OBINUTUZUMAB [Suspect]
     Active Substance: OBINUTUZUMAB
     Indication: CHRONIC LYMPHOCYTIC LEUKAEMIA
     Dosage: C1D1
     Route: 041
     Dates: start: 20151223, end: 20161201
  6. PYOSTACINE [Concomitant]
     Active Substance: PRISTINAMYCIN
     Indication: NASOPHARYNGITIS
     Dosage: 500 MG 2 DF X 3/D
     Route: 065
     Dates: start: 20160315, end: 20160319
  7. TAVANIC [Concomitant]
     Active Substance: LEVOFLOXACIN
     Indication: BRONCHITIS
     Route: 065
     Dates: start: 20160621, end: 20160623
  8. ZELITREX [Concomitant]
     Active Substance: VALACYCLOVIR HYDROCHLORIDE
     Indication: ANTIVIRAL PROPHYLAXIS
     Route: 065
     Dates: start: 20160830
  9. SOLU-MEDROL [Concomitant]
     Active Substance: METHYLPREDNISOLONE SODIUM SUCCINATE
     Indication: INFUSION RELATED REACTION
     Route: 065
     Dates: start: 20151222, end: 20151222
  10. CEFPODOXIME [Concomitant]
     Active Substance: CEFPODOXIME
     Indication: BRONCHITIS
     Route: 065
     Dates: start: 20160510, end: 20160514
  11. CLAFORAN (FRANCE) [Concomitant]
     Indication: INFECTION PROPHYLAXIS
     Route: 065
     Dates: start: 20161107
  12. CLAFORAN (FRANCE) [Concomitant]
     Route: 065
     Dates: start: 20161108
  13. ZOLPIDEM [Concomitant]
     Active Substance: ZOLPIDEM\ZOLPIDEM TARTRATE
     Indication: INSOMNIA
     Route: 065
     Dates: start: 20161111
  14. BACTRIM [Concomitant]
     Active Substance: SULFAMETHOXAZOLE\TRIMETHOPRIM
     Indication: PROPHYLAXIS
     Route: 065
     Dates: start: 20160830, end: 20161115
  15. POLARAMINE [Concomitant]
     Active Substance: DEXCHLORPHENIRAMINE MALEATE
     Indication: INFUSION RELATED REACTION
     Route: 065
     Dates: start: 20151222, end: 20151222
  16. FLUDARABINE [Concomitant]
     Active Substance: FLUDARABINE PHOSPHATE
     Dosage: DAY 2, MONTH 10,
     Route: 048
     Dates: start: 20160830, end: 20161201
  17. PRIMPERAN [Concomitant]
     Active Substance: METOCLOPRAMIDE HYDROCHLORIDE
     Indication: VOMITING
     Dosage: 1 TO 3 SPOONFUL/DAY
     Route: 065
     Dates: start: 20160830, end: 20160901
  18. PIPERACILLIN/TAZOBACTAM [Concomitant]
     Active Substance: PIPERACILLIN SODIUM\TAZOBACTAM SODIUM
     Indication: HYPERTENSION
     Route: 065
     Dates: start: 20161108, end: 20161115
  19. IBRUTINIB [Suspect]
     Active Substance: IBRUTINIB
     Indication: CHRONIC LYMPHOCYTIC LEUKAEMIA
     Route: 048
     Dates: start: 20151223, end: 20160906
  20. CYCLOPHOSPHAMIDE. [Concomitant]
     Active Substance: CYCLOPHOSPHAMIDE
     Route: 048
     Dates: start: 20160830, end: 20161201
  21. OXAZEPAM. [Concomitant]
     Active Substance: OXAZEPAM
     Indication: ANXIETY
     Route: 065
     Dates: start: 20161108, end: 20161113

REACTIONS (7)
  - Febrile neutropenia [Recovered/Resolved]
  - Headache [Not Recovered/Not Resolved]
  - Febrile neutropenia [Recovered/Resolved]
  - Pyrexia [Not Recovered/Not Resolved]
  - Pain [Not Recovered/Not Resolved]
  - Pain [Recovered/Resolved]
  - Campylobacter infection [Recovered/Resolved]

NARRATIVE: CASE EVENT DATE: 20160907
